FAERS Safety Report 8069580-1 (Version None)
Quarter: 2012Q1

REPORT INFORMATION
  Report Type: 
  Country: None (occurrence: None)
  Receive Date: 20120125
  Receipt Date: 20120123
  Transmission Date: 20120608
  Serious: Yes (Other)
  Sender: FDA-Public Use
  Company Number: US-JNJFOC-20120109659

PATIENT
  Sex: Female
  Weight: 137.44 kg

DRUGS (12)
  1. LYRICA [Suspect]
     Indication: NEUROPATHY PERIPHERAL
     Route: 065
  2. LYRICA [Suspect]
     Indication: FIBROMYALGIA
     Route: 065
  3. XANAX [Suspect]
     Route: 065
  4. TOPAMAX [Suspect]
     Indication: PRODUCT USED FOR UNKNOWN INDICATION
     Route: 048
  5. INDERAL [Concomitant]
     Indication: MIGRAINE
     Route: 065
     Dates: start: 19700101
  6. LYRICA [Suspect]
     Dosage: STOP DATE JAN-2012
     Route: 065
     Dates: start: 20020101, end: 20120101
  7. XANAX [Suspect]
     Indication: ANXIETY
     Route: 065
     Dates: start: 20020101
  8. CYMBALTA [Suspect]
     Indication: FIBROMYALGIA
     Route: 065
     Dates: start: 20020101, end: 20111201
  9. CYMBALTA [Suspect]
     Indication: DEPRESSION
     Route: 065
     Dates: start: 20020101, end: 20111201
  10. CELEBREX [Suspect]
     Indication: PAIN
     Route: 065
  11. LYRICA [Suspect]
     Dosage: STOP DATE JAN-2012
     Route: 065
     Dates: start: 20020101, end: 20120101
  12. EFFEXOR [Suspect]
     Indication: PRODUCT USED FOR UNKNOWN INDICATION
     Route: 065

REACTIONS (2)
  - DIABETES MELLITUS [None]
  - PANIC ATTACK [None]
